FAERS Safety Report 21336408 (Version 1)
Quarter: 2022Q3

REPORT INFORMATION
  Report Type: Spontaneous
  Country: SE (occurrence: SE)
  Receive Date: 20220915
  Receipt Date: 20220915
  Transmission Date: 20221027
  Serious: Yes (Life-Threatening, Hospitalization)
  Sender: FDA-Public Use
  Company Number: None

PATIENT
  Age: 76 Year
  Sex: Female

DRUGS (11)
  1. METFORMIN HYDROCHLORIDE [Suspect]
     Active Substance: METFORMIN HYDROCHLORIDE
     Indication: Type 2 diabetes mellitus
     Dosage: 2X2 , UNIT DOSE :2000 MG  , FREQUENCY TIME : 1 DAY  , DURATION : 4 YEARS
     Dates: start: 20181023, end: 20220724
  2. ENALAPRIL [Concomitant]
     Active Substance: ENALAPRIL
     Indication: Product used for unknown indication
     Dosage: 1X1 ,  20 MG/12.5 MG TABLET
  3. FOLIC ACID HYDRATE [Concomitant]
     Indication: Product used for unknown indication
     Dosage: 1MG 1X1
  4. VICTOZA [Concomitant]
     Active Substance: LIRAGLUTIDE
     Indication: Product used for unknown indication
     Dosage: 1,8 MG X1 , FORM STRENGTH : 6 MG/ML LIQUID FOR INJECTION, SOLUTION IN PRE-FILLED INJECTION PEN
  5. ACETAMINOPHEN [Concomitant]
     Active Substance: ACETAMINOPHEN
     Indication: Product used for unknown indication
     Dosage: VB
  6. INSULIN ASPART [Concomitant]
     Active Substance: INSULIN ASPART
     Indication: Product used for unknown indication
     Dosage: 30 FLEXPEN 100 U/ML LIQUID FOR INJECTION, SUSPENSION IN PREFILLED
  7. FURIX [Concomitant]
     Indication: Product used for unknown indication
     Dosage: VB ,FORM STRENGTH :   20 MG
  8. OMEPRAZOLE [Concomitant]
     Active Substance: OMEPRAZOLE
     Indication: Product used for unknown indication
     Dosage: 1X1 , FORM STRENGTH :  20 MG ENTERIC CAPSULE, HARD
  9. SIMVASTATIN [Concomitant]
     Active Substance: SIMVASTATIN
     Indication: Product used for unknown indication
     Dosage: 1X1 , FORM STRENGTH :  20 MG
  10. METOPROLOL [Concomitant]
     Active Substance: METOPROLOL
     Indication: Product used for unknown indication
     Dosage: 1X1 , FORM STRENGTH : 50 MG SUSTAINED-RELEASE TABLET
  11. AMLODIPINE BESYLATE [Concomitant]
     Active Substance: AMLODIPINE BESYLATE
     Indication: Product used for unknown indication
     Dosage: 5 MG 1X1

REACTIONS (2)
  - Lactic acidosis [Not Recovered/Not Resolved]
  - Renal failure [Not Recovered/Not Resolved]

NARRATIVE: CASE EVENT DATE: 20220724
